FAERS Safety Report 9841391 (Version 2)
Quarter: 2014Q1

REPORT INFORMATION
  Report Type: Report from Study
  Country: US (occurrence: US)
  Receive Date: 20140124
  Receipt Date: 20140124
  Transmission Date: 20141002
  Serious: Yes (Hospitalization, Disabling, Other)
  Sender: FDA-Public Use
  Company Number: PHEH2013US010432

PATIENT
  Age: 75 Year
  Sex: Female
  Weight: 69.3 kg

DRUGS (12)
  1. GLEEVEC [Suspect]
     Indication: NEOPLASM MALIGNANT
     Dosage: 400 MG, DAILY
     Route: 048
     Dates: start: 20130426, end: 20130614
  2. GLEEVEC [Suspect]
     Indication: GASTROINTESTINAL STROMAL TUMOUR
  3. FIBERCON [Concomitant]
     Dosage: 625 MG, UNK
  4. CIPRO XL [Concomitant]
     Dosage: 250 MG, UNK
  5. ATENOLOL [Concomitant]
     Dosage: 50 MG, UNK
  6. TRAZODONE [Concomitant]
     Dosage: 100 MG, UNK
  7. AMLODIPINE BENAZEPRIL [Concomitant]
     Dosage: UNK, 10/20 MG
  8. ACYCLOVIR [Concomitant]
     Dosage: 400 MG, UNK
  9. ZOFRAN [Concomitant]
     Dosage: 4 MG, UNK
  10. CLARITIN-D [Concomitant]
     Dosage: UNK UKN, UNK
  11. OMEPRAZOLE [Concomitant]
     Dosage: UNK UKN, UNK
  12. FUROSEMIDE [Concomitant]
     Dosage: 20 MG, UNK

REACTIONS (12)
  - Dyspnoea [Recovering/Resolving]
  - Local swelling [Recovering/Resolving]
  - Renal disorder [Recovering/Resolving]
  - Gastrointestinal obstruction [Unknown]
  - Joint injury [Unknown]
  - Gait disturbance [Recovered/Resolved]
  - Blister [Unknown]
  - Drug intolerance [Unknown]
  - Diarrhoea [Unknown]
  - Haematocrit decreased [Unknown]
  - Vomiting [Unknown]
  - Swelling [Unknown]
